FAERS Safety Report 15934141 (Version 1)
Quarter: 2019Q1

REPORT INFORMATION
  Report Type: Spontaneous
  Country: US (occurrence: US)
  Receive Date: 20190207
  Receipt Date: 20190207
  Transmission Date: 20190417
  Serious: No
  Sender: FDA-Public Use
  Company Number: US-MORTON GROVE PHARMACEUTICALS, INC.-2062294

PATIENT
  Sex: Female

DRUGS (1)
  1. GENERLAC [Suspect]
     Active Substance: LACTULOSE

REACTIONS (2)
  - Dizziness [Unknown]
  - Vomiting [Unknown]
